FAERS Safety Report 8224479-2 (Version None)
Quarter: 2012Q1

REPORT INFORMATION
  Report Type: 
  Country: None (occurrence: None)
  Receive Date: 20120321
  Receipt Date: 20120313
  Transmission Date: 20120608
  Serious: Yes (Other)
  Sender: FDA-Public Use
  Company Number: PHFR2011GB05828

PATIENT
  Sex: Female

DRUGS (11)
  1. CLOZARIL [Suspect]
     Dosage: 200 MG, ONCE/SINGLE
     Route: 048
     Dates: start: 20110525
  2. CLOZARIL [Suspect]
     Dosage: 400 MG, DAILY
     Route: 048
     Dates: start: 20120214
  3. CLONAZEPAM [Concomitant]
     Indication: ANXIETY
     Dosage: 0.5 MG, DAILY
     Route: 048
     Dates: start: 20090101
  4. CLOZARIL [Suspect]
     Dosage: 300 MG, DAILY
     Route: 048
     Dates: start: 20100802
  5. CLOZARIL [Suspect]
     Indication: SCHIZOPHRENIA
     Dosage: 150 MG, DAILY
     Route: 048
     Dates: start: 20100719
  6. CLOZARIL [Suspect]
     Dosage: 100 MG, DAILY
     Route: 048
     Dates: start: 20120131
  7. CLOZARIL [Suspect]
     Dosage: 300 MG, DAILY
     Route: 048
     Dates: start: 20120207
  8. CLOZARIL [Suspect]
     Dosage: 400 MG, DAILY
     Route: 048
     Dates: start: 20100809, end: 20110104
  9. VENLAFAXINE [Concomitant]
     Indication: DEPRESSION
     Dosage: 225 MG, DAILY
     Route: 048
     Dates: start: 20090101
  10. TOPIRAMATE [Concomitant]
  11. CLOZARIL [Suspect]
     Dosage: 250 MG, DAILY
     Route: 048
     Dates: start: 20100726

REACTIONS (5)
  - WEIGHT INCREASED [None]
  - INCONTINENCE [None]
  - HAEMOGLOBIN INCREASED [None]
  - MOBILITY DECREASED [None]
  - DYSPNOEA [None]
